FAERS Safety Report 13359406 (Version 1)
Quarter: 2017Q1

REPORT INFORMATION
  Report Type: Spontaneous
  Country: US (occurrence: US)
  Receive Date: 20170321
  Receipt Date: 20170321
  Transmission Date: 20170429
  Serious: No
  Sender: FDA-Public Use
  Company Number: None

PATIENT
  Age: 58 Year
  Sex: Female

DRUGS (1)
  1. TETRABENAZIN [Suspect]
     Active Substance: TETRABENAZINE

REACTIONS (2)
  - Insomnia [None]
  - Psychomotor hyperactivity [None]

NARRATIVE: CASE EVENT DATE: 20170320
